FAERS Safety Report 8780933 (Version 4)
Quarter: 2012Q4

REPORT INFORMATION
  Report Type: 
  Country: JP (occurrence: JP)
  Receive Date: 20120913
  Receipt Date: 20121221
  Transmission Date: 20130627
  Serious: Yes (Hospitalization, Disabling)
  Sender: FDA-Public Use
  Company Number: JP-B.I. PHARMACEUTICALS,INC./RIDGEFIELD-2012-BP-22096NB

PATIENT
  Age: 79 Year
  Sex: Female
  Weight: 42.1 kg

DRUGS (15)
  1. PRAZAXA [Suspect]
     Indication: CEREBROVASCULAR ACCIDENT PROPHYLAXIS
     Dosage: 220 mg
     Route: 048
     Dates: start: 20120407, end: 20120905
  2. PRAZAXA [Suspect]
     Indication: ATRIAL FIBRILLATION
  3. FERROMIA [Concomitant]
     Indication: ANAEMIA
     Dosage: 0.4 g
     Route: 048
  4. BLOPRESS [Concomitant]
     Indication: HYPERTENSION
     Dosage: 8 mg
     Route: 048
  5. TAKEPRON [Concomitant]
     Indication: GASTROOESOPHAGEAL REFLUX DISEASE
     Dosage: 30 mg
     Route: 048
  6. MAINTATE [Concomitant]
     Dosage: 2.5 mg
     Route: 048
     Dates: start: 20120901
  7. HERBESSER R [Concomitant]
     Dosage: 100 mg
     Route: 048
     Dates: start: 20120630
  8. ALDACTONE A [Concomitant]
     Dosage: 50 mg
     Route: 048
     Dates: start: 20120825
  9. DIART [Concomitant]
     Dosage: 12 mg
     Route: 048
     Dates: start: 20120825
  10. SIGMART [Concomitant]
     Dosage: 15 mg
     Route: 048
     Dates: start: 20120829
  11. MIYA-BM [Concomitant]
     Dosage: 3 g
     Route: 048
     Dates: start: 20120830
  12. PROMAC [Concomitant]
     Dosage: 150 mg
     Route: 048
     Dates: start: 20120830
  13. ANCARON [Concomitant]
     Indication: ATRIAL FIBRILLATION
     Dosage: 200 mg
     Route: 048
  14. VASOLAN [Concomitant]
     Indication: ATRIAL FIBRILLATION
     Dosage: 80 mg
     Route: 048
  15. HALFDIGOXIN [Concomitant]
     Indication: ATRIAL FIBRILLATION
     Route: 048

REACTIONS (2)
  - Arterial occlusive disease [Not Recovered/Not Resolved]
  - Drug ineffective [Unknown]
